FAERS Safety Report 8256583-7 (Version None)
Quarter: 2012Q2

REPORT INFORMATION
  Report Type: 
  Country: None (occurrence: None)
  Receive Date: 20120403
  Receipt Date: 20120328
  Transmission Date: 20120825
  Serious: Yes (Life-Threatening, Hospitalization, Other)
  Sender: FDA-Public Use
  Company Number: JP-PFIZER INC-2011277693

PATIENT
  Age: 88 Year
  Sex: Female
  Weight: 35 kg

DRUGS (2)
  1. LYRICA [Suspect]
     Indication: PAIN
     Dosage: 75 MG, 2X/DAY
     Route: 048
     Dates: start: 20111012, end: 20111013
  2. FAMVIR [Suspect]
     Indication: HERPES ZOSTER
     Dosage: 500 MG, 3X/DAY
     Route: 048
     Dates: start: 20111011, end: 20111013

REACTIONS (1)
  - ALTERED STATE OF CONSCIOUSNESS [None]
